FAERS Safety Report 5949005-X (Version None)
Quarter: 2008Q4

REPORT INFORMATION
  Report Type: 
  Country: None (occurrence: None)
  Receive Date: 20081111
  Receipt Date: 20081104
  Transmission Date: 20090506
  Serious: Yes (Death)
  Sender: FDA-Public Use
  Company Number: IT-ELI_LILLY_AND_COMPANY-IT200810002665

PATIENT
  Sex: Male

DRUGS (7)
  1. BYETTA [Suspect]
     Indication: TYPE 2 DIABETES MELLITUS
     Dosage: 5 UG, UNKNOWN
     Route: 058
     Dates: start: 20080729, end: 20080827
  2. BYETTA [Suspect]
     Dosage: 10 UG, 2/D
     Route: 058
     Dates: start: 20080828
  3. NOVONORM [Concomitant]
     Dosage: 6 MG, UNKNOWN
     Route: 048
  4. LASIX [Concomitant]
     Dosage: 250 MG, UNKNOWN
     Route: 048
  5. TRIATEC [Concomitant]
     Dosage: 10 MG, UNKNOWN
     Route: 048
  6. RATACAND [Concomitant]
     Dosage: 8 MG, UNKNOWN
     Route: 048
  7. DILATREND [Concomitant]
     Dosage: 12.5 MG, UNKNOWN
     Route: 048

REACTIONS (2)
  - SUDDEN CARDIAC DEATH [None]
  - WEIGHT DECREASED [None]
